FAERS Safety Report 7422570-1 (Version None)
Quarter: 2011Q2

REPORT INFORMATION
  Report Type: 
  Country: None (occurrence: None)
  Receive Date: 20110419
  Receipt Date: 20110404
  Transmission Date: 20111010
  Serious: Yes (Other)
  Sender: FDA-Public Use
  Company Number: FR-JNJFOC-20110406320

PATIENT
  Age: 68 Year
  Sex: Male

DRUGS (2)
  1. ITRACONAZOLE [Suspect]
     Indication: KERATITIS FUNGAL
     Route: 048
  2. AMPHOTERICIN B [Suspect]
     Indication: KERATITIS FUNGAL
     Route: 065

REACTIONS (2)
  - PANOPHTHALMITIS [None]
  - DRUG INEFFECTIVE [None]
